FAERS Safety Report 7928571-9 (Version None)
Quarter: 2011Q4

REPORT INFORMATION
  Report Type: 
  Country: None (occurrence: None)
  Receive Date: 20111118
  Receipt Date: 20111114
  Transmission Date: 20120403
  Serious: Yes (Hospitalization)
  Sender: FDA-Public Use
  Company Number: FR-BAYER-2011-110541

PATIENT
  Age: 66 Year
  Sex: Female

DRUGS (5)
  1. CIPROFLOXACIN [Suspect]
     Indication: PYELONEPHRITIS
     Dosage: 500 MG, UNK
     Route: 048
     Dates: start: 20111009, end: 20111015
  2. METFORMIN HCL [Concomitant]
  3. ATORVASTATIN CALCIUM [Concomitant]
  4. HYZAAR [Concomitant]
  5. GLIMEPIRIDE [Concomitant]

REACTIONS (1)
  - HYPOGLYCAEMIC COMA [None]
